FAERS Safety Report 7751499-4 (Version None)
Quarter: 2011Q3

REPORT INFORMATION
  Report Type: 
  Country: None (occurrence: None)
  Receive Date: 20110914
  Receipt Date: 20110901
  Transmission Date: 20111222
  Serious: Yes (Other)
  Sender: FDA-Public Use
  Company Number: PHHY2011FR79500

PATIENT
  Age: 32 Year
  Sex: Female

DRUGS (5)
  1. CYCLOSPORINE [Suspect]
     Indication: PAROXYSMAL NOCTURNAL HAEMOGLOBINURIA
     Dosage: UNK UKN, UNK
  2. ECULIZUMAB [Concomitant]
     Dosage: UNK UKN, UNK
  3. DANAPAROID [Concomitant]
     Indication: THROMBOSIS PROPHYLAXIS
     Dosage: UNK UKN, UNK
  4. PLATELETS [Concomitant]
  5. ASPIRIN [Concomitant]
     Indication: THROMBOSIS PROPHYLAXIS
     Dosage: UNK UKN, UNK

REACTIONS (3)
  - CEREBRAL INFARCTION [None]
  - MATERNAL EXPOSURE DURING PREGNANCY [None]
  - NORMAL NEWBORN [None]
